FAERS Safety Report 20753207 (Version 3)
Quarter: 2022Q2

REPORT INFORMATION
  Report Type: Spontaneous
  Country: JP (occurrence: None)
  Receive Date: 20220426
  Receipt Date: 20220503
  Transmission Date: 20220721
  Serious: Yes (Other)
  Sender: FDA-Public Use
  Company Number: 2022A159970

PATIENT
  Age: 44 Year
  Sex: Female

DRUGS (2)
  1. NEXIUM [Suspect]
     Active Substance: ESOMEPRAZOLE MAGNESIUM
     Route: 048
     Dates: start: 202103, end: 202105
  2. TEGRETOL [Suspect]
     Active Substance: CARBAMAZEPINE
     Dosage: DOSE UNKNOWN
     Route: 065

REACTIONS (1)
  - Drug eruption [Unknown]
